FAERS Safety Report 12547811 (Version 1)
Quarter: 2016Q3

REPORT INFORMATION
  Report Type: Spontaneous
  Country: FR (occurrence: FR)
  Receive Date: 20160712
  Receipt Date: 20160712
  Transmission Date: 20161109
  Serious: Yes (Hospitalization)
  Sender: FDA-Public Use
  Company Number: FR-ACCORD-042131

PATIENT
  Age: 69 Year
  Sex: Male

DRUGS (3)
  1. DOCETAXEL HOSPIRA [Suspect]
     Active Substance: DOCETAXEL
     Indication: SQUAMOUS CELL CARCINOMA
     Route: 042
     Dates: start: 20160512, end: 20160512
  2. ACCORD FLUOROURACIL [Suspect]
     Active Substance: FLUOROURACIL
     Indication: SQUAMOUS CELL CARCINOMA
     Route: 042
     Dates: start: 20160512, end: 20160512
  3. ACCORD CISPLATIN [Suspect]
     Active Substance: CISPLATIN
     Indication: SQUAMOUS CELL CARCINOMA
     Route: 042
     Dates: start: 20160512, end: 20160516

REACTIONS (13)
  - Disseminated intravascular coagulation [Unknown]
  - Abdominal pain [Unknown]
  - Diarrhoea [Recovered/Resolved]
  - Thrombocytopenia [Recovered/Resolved]
  - Prothrombin time shortened [Unknown]
  - Septic shock [Recovering/Resolving]
  - Hyponatraemia [Unknown]
  - Hyperlactacidaemia [Unknown]
  - Acute kidney injury [Recovered/Resolved]
  - Generalised oedema [Unknown]
  - Leukopenia [Recovered/Resolved]
  - Metabolic acidosis [Recovered/Resolved]
  - Hypovolaemia [Unknown]

NARRATIVE: CASE EVENT DATE: 20160520
